FAERS Safety Report 7800478-7 (Version None)
Quarter: 2011Q4

REPORT INFORMATION
  Report Type: 
  Country: None (occurrence: None)
  Receive Date: 20111006
  Receipt Date: 20110929
  Transmission Date: 20120403
  Serious: Yes (Hospitalization)
  Sender: FDA-Public Use
  Company Number: SE-PFIZER INC-2011233519

PATIENT
  Age: 65 Year
  Sex: Male

DRUGS (17)
  1. ASPIRIN [Concomitant]
     Dosage: 75 MG, UNK
  2. IMDUR [Concomitant]
     Dosage: 30 MG, UNK
  3. SULFASALAZINE [Suspect]
     Indication: RHEUMATOID ARTHRITIS
     Dosage: UNK
     Dates: end: 20110601
  4. OMEPRAZOLE [Concomitant]
     Dosage: UNK
  5. ACETYLCYSTEINE [Concomitant]
     Dosage: UNK
  6. RAMIPRIL [Concomitant]
     Dosage: UNK
  7. COMBIVENT [Concomitant]
     Dosage: UNK
  8. KALCIPOS-D [Concomitant]
     Dosage: UNK
  9. SIMVASTATIN [Concomitant]
     Dosage: UNK
  10. ALENDRONATE SODIUM [Concomitant]
     Dosage: 70 MG, WEEKLY
  11. SYMBICORT [Concomitant]
     Dosage: UNK
  12. EZETIMIBE [Concomitant]
     Dosage: 10 MG, UNK
  13. BISOPROLOL [Concomitant]
     Dosage: UNK
  14. ACETAMINOPHEN W/ CODEINE [Concomitant]
     Dosage: UNK
  15. FUROSEMIDE [Concomitant]
     Dosage: 20 MG, UNK
  16. ESCITALOPRAM [Concomitant]
     Dosage: UNK
  17. LACTULOSE [Concomitant]
     Dosage: UNK

REACTIONS (8)
  - PYREXIA [None]
  - WEIGHT DECREASED [None]
  - ORGANISING PNEUMONIA [None]
  - DECREASED APPETITE [None]
  - PULMONARY FIBROSIS [None]
  - BALANCE DISORDER [None]
  - DIPLOPIA [None]
  - HEADACHE [None]
